FAERS Safety Report 9904325 (Version 1)
Quarter: 2014Q1

REPORT INFORMATION
  Report Type: Spontaneous
  Country: US (occurrence: US)
  Receive Date: 20140218
  Receipt Date: 20140218
  Transmission Date: 20141002
  Serious: No
  Sender: FDA-Public Use
  Company Number: US-PFIZER INC-2014042705

PATIENT
  Age: 80 Year
  Sex: Female

DRUGS (10)
  1. SUTENT [Suspect]
     Indication: RENAL CANCER
     Dosage: UNK
  2. ALEVE [Concomitant]
     Dosage: UNK
  3. CLONAZEPAM [Concomitant]
     Dosage: UNK
  4. FUROSEMIDE [Concomitant]
     Dosage: UNK
  5. HYDROCODONE-ACETAMINOPHEN [Concomitant]
     Dosage: UNK
  6. LANTUS SOLOSTAR [Concomitant]
     Dosage: UNK
  7. LOSARTAN POTASSIUM W/HYDROCHLOROTHIAZIDE [Concomitant]
     Dosage: UNK
  8. METOPROLOL SUCCINATE ER [Concomitant]
     Dosage: UNK
  9. NYSTATIN [Concomitant]
     Dosage: UNK
  10. POTASSIUM CHLORIDE ER [Concomitant]
     Dosage: UNK

REACTIONS (1)
  - Vulvovaginal rash [Unknown]
